FAERS Safety Report 7302941-4 (Version None)
Quarter: 2011Q1

REPORT INFORMATION
  Report Type: 
  Country: None (occurrence: None)
  Receive Date: 20110218
  Receipt Date: 20110209
  Transmission Date: 20110831
  Serious: Yes (Hospitalization)
  Sender: FDA-Public Use
  Company Number: US-ASTRAZENECA-2011SE07656

PATIENT
  Age: 58 Year
  Sex: Female
  Weight: 117.9 kg

DRUGS (12)
  1. SEROQUEL [Suspect]
     Route: 048
     Dates: start: 20100101
  2. RANITIDINE [Concomitant]
  3. CARBIDOPA [Concomitant]
  4. ZOLPIDEM [Concomitant]
  5. SEROQUEL [Suspect]
     Route: 048
     Dates: start: 20100101
  6. SEROQUEL [Suspect]
     Route: 048
     Dates: start: 20091101
  7. PLAVIX [Concomitant]
  8. OXYCODONE [Concomitant]
  9. FUROSEMIDE [Concomitant]
  10. SEROQUEL [Suspect]
     Route: 048
  11. TOPAMAX [Concomitant]
  12. XANAX [Concomitant]

REACTIONS (4)
  - CEREBROVASCULAR ACCIDENT [None]
  - MOVEMENT DISORDER [None]
  - PARKINSON'S DISEASE [None]
  - PNEUMONIA [None]
